FAERS Safety Report 5853586-4 (Version None)
Quarter: 2008Q3

REPORT INFORMATION
  Report Type: 
  Country: None (occurrence: None)
  Receive Date: 20080822
  Receipt Date: 20080812
  Transmission Date: 20090109
  Serious: Yes (Hospitalization)
  Sender: FDA-Public Use
  Company Number: US-JNJFOC-20080803409

PATIENT
  Age: 39 Year
  Sex: Male
  Weight: 135 kg

DRUGS (6)
  1. RISPERIDONE [Suspect]
     Indication: EPILEPTIC PSYCHOSIS
     Route: 065
  2. CARBAMAZEPINE [Suspect]
     Route: 065
  3. CARBAMAZEPINE [Suspect]
     Indication: EPILEPTIC PSYCHOSIS
     Route: 065
  4. HYDROCHLOROTHIAZIDE [Concomitant]
     Route: 065
  5. RANITIDINE [Concomitant]
     Route: 065
  6. ATENOLOL [Concomitant]
     Route: 065

REACTIONS (7)
  - CLONUS [None]
  - COGNITIVE DISORDER [None]
  - DEPRESSED MOOD [None]
  - HYPERGLYCAEMIC HYPEROSMOLAR NONKETOTIC SYNDROME [None]
  - INSULIN-REQUIRING TYPE 2 DIABETES MELLITUS [None]
  - TACHYCARDIA [None]
  - WEIGHT INCREASED [None]
